FAERS Safety Report 7650167-7 (Version None)
Quarter: 2011Q3

REPORT INFORMATION
  Report Type: 
  Country: None (occurrence: None)
  Receive Date: 20110719
  Receipt Date: 20101116
  Transmission Date: 20111222
  Serious: Yes (Hospitalization)
  Sender: FDA-Public Use
  Company Number: 163-50794-10111975

PATIENT
  Age: 61 Year
  Sex: Female
  Weight: 76 kg

DRUGS (1)
  1. VIDAZA [Suspect]
     Indication: MYELODYSPLASTIC SYNDROME
     Dosage: 75 MG/M2, INJ
     Route: 042
     Dates: start: 20101021, end: 20101029

REACTIONS (3)
  - INJECTION SITE REACTION [None]
  - INJECTION SITE INFECTION [None]
  - CONTUSION [None]
